FAERS Safety Report 10080875 (Version 1)
Quarter: 2014Q2

REPORT INFORMATION
  Report Type: Spontaneous
  Country: US (occurrence: None)
  Receive Date: 20140414
  Receipt Date: 20140414
  Transmission Date: 20141212
  Serious: Yes (Other)
  Sender: FDA-Public Use
  Company Number: 20140188

PATIENT
  Age: 50 Year
  Sex: Female

DRUGS (1)
  1. VENOFER [Suspect]
     Indication: PRODUCT USED FOR UNKNOWN INDICATION
     Route: 041
     Dates: start: 201403, end: 201403

REACTIONS (7)
  - Convulsion [None]
  - Unresponsive to stimuli [None]
  - Tremor [None]
  - Heart rate increased [None]
  - Blood pressure increased [None]
  - Infusion related reaction [None]
  - Muscle spasms [None]
